FAERS Safety Report 4373712-6 (Version None)
Quarter: 2004Q1

REPORT INFORMATION
  Report Type: 
  Country: None (occurrence: None)
  Receive Date: 20040305
  Receipt Date: 20040105
  Transmission Date: 20041129
  Serious: Yes (Other)
  Sender: FDA-Public Use
  Company Number: 2004UW00094

PATIENT
  Age: 74 Year
  Sex: Male
  Weight: 74.8435 kg

DRUGS (5)
  1. CRESTOR [Suspect]
     Indication: BLOOD CHOLESTEROL INCREASED
     Dosage: 10 MG PO
     Route: 048
  2. NEURONTIN [Concomitant]
  3. ALLEGRA [Concomitant]
  4. PROCARDIA [Concomitant]
  5. XANAX [Concomitant]

REACTIONS (1)
  - ERECTILE DYSFUNCTION [None]
